FAERS Safety Report 11111979 (Version 1)
Quarter: 2015Q2

REPORT INFORMATION
  Report Type: Spontaneous
  Country: US (occurrence: US)
  Receive Date: 20150514
  Receipt Date: 20150514
  Transmission Date: 20150821
  Serious: Yes (Other)
  Sender: FDA-Public Use
  Company Number: US-SUN PHARMACEUTICAL INDUSTRIES LTD-2015SUN01101

PATIENT
  Age: 47 Year
  Sex: Male

DRUGS (4)
  1. LACTULOSE 10 G/15 ML SOLUTION [Interacting]
     Active Substance: LACTULOSE
     Indication: CONSTIPATION
     Dosage: 30 ML, BID, 2 DOSES
     Route: 065
  2. QUETIAPINE [Concomitant]
     Active Substance: QUETIAPINE
     Dosage: 400 MG, BID
     Route: 065
  3. DIVALPROATE [Concomitant]
     Dosage: 1500 MG, OD, EXTENDED RELEASE NIGHTLY
  4. LITHIUM CARBONATE. [Suspect]
     Active Substance: LITHIUM CARBONATE
     Indication: SCHIZOAFFECTIVE DISORDER
     Dosage: 300 MG, BID
     Route: 065

REACTIONS (5)
  - Suicide attempt [None]
  - Intentional self-injury [None]
  - Drug interaction [Recovered/Resolved]
  - Diarrhoea [None]
  - Toxicity to various agents [Recovered/Resolved]
